FAERS Safety Report 25786735 (Version 1)
Quarter: 2025Q3

REPORT INFORMATION
  Report Type: Spontaneous
  Country: US (occurrence: None)
  Receive Date: 20250909
  Receipt Date: 20250909
  Transmission Date: 20251020
  Serious: No
  Sender: FDA-CTU
  Company Number: None

PATIENT
  Age: 65 Year
  Sex: Female
  Weight: 85.5 kg

DRUGS (14)
  1. JOURNAVX [Suspect]
     Active Substance: SUZETRIGINE
     Indication: Procedural pain
     Dosage: OTHER QUANTITY : 1 TABLET(S);?FREQUENCY : EVERY 12 HOURS;?
     Route: 048
     Dates: start: 20250903, end: 20250909
  2. PREVACID [Concomitant]
     Active Substance: LANSOPRAZOLE
  3. ENTRESTO [Concomitant]
     Active Substance: SACUBITRIL\VALSARTAN
  4. METOPROLOL [Concomitant]
     Active Substance: METOPROLOL
  5. CELEXA [Concomitant]
     Active Substance: CITALOPRAM HYDROBROMIDE
  6. Momotil [Concomitant]
  7. MELOXICAM [Concomitant]
     Active Substance: MELOXICAM
  8. SINGULAIR [Concomitant]
     Active Substance: MONTELUKAST SODIUM
  9. Pacemaker/defibillator [Concomitant]
  10. nerve + spine stimulators [Concomitant]
  11. ZYRTEC [Concomitant]
     Active Substance: CETIRIZINE HYDROCHLORIDE
  12. VITAMIN B [Concomitant]
     Active Substance: VITAMIN B
  13. IMODIUM [Concomitant]
     Active Substance: LOPERAMIDE HYDROCHLORIDE
  14. meta-mucil [Concomitant]

REACTIONS (1)
  - Epistaxis [None]

NARRATIVE: CASE EVENT DATE: 20250907
